FAERS Safety Report 9876880 (Version 1)
Quarter: 2014Q1

REPORT INFORMATION
  Report Type: Spontaneous
  Country: US (occurrence: US)
  Receive Date: 20140206
  Receipt Date: 20140206
  Transmission Date: 20141002
  Serious: No
  Sender: FDA-Public Use
  Company Number: US-BAYER-2014-017517

PATIENT
  Age: 57 Year
  Sex: Female

DRUGS (1)
  1. BETASERON [Suspect]
     Indication: MULTIPLE SCLEROSIS
     Dosage: TOTAL DAILY DOSE: 0,3MG/ DOSE REGIMEN: 0,25MG
     Route: 058
     Dates: start: 200912, end: 201401

REACTIONS (2)
  - Injection site erythema [None]
  - Injection site induration [None]
